FAERS Safety Report 6471096-0 (Version None)
Quarter: 2009Q4

REPORT INFORMATION
  Report Type: 
  Country: None (occurrence: None)
  Receive Date: 20091203
  Receipt Date: 20091124
  Transmission Date: 20100525
  Serious: Yes (Other)
  Sender: FDA-Public Use
  Company Number: PHHY2009MX45171

PATIENT
  Sex: Female

DRUGS (2)
  1. DIOVAN HCT [Suspect]
     Indication: HYPERTENSION
     Dosage: 0.5 TABLET (160/12.5 MG) DAILY
     Route: 048
     Dates: start: 20081001
  2. DRUG THERAPY NOS [Concomitant]
     Dosage: UNK

REACTIONS (6)
  - BLOOD CHOLESTEROL ABNORMAL [None]
  - FALL [None]
  - FOOT FRACTURE [None]
  - HYPERCHOLESTEROLAEMIA [None]
  - SPLINT APPLICATION [None]
  - TREATMENT NONCOMPLIANCE [None]
